FAERS Safety Report 18861698 (Version 1)
Quarter: 2021Q1

REPORT INFORMATION
  Report Type: Spontaneous
  Country: IL (occurrence: IL)
  Receive Date: 20210209
  Receipt Date: 20210209
  Transmission Date: 20210420
  Serious: No
  Sender: FDA-Public Use
  Company Number: IL-LUPIN PHARMACEUTICALS INC.-2021-01005

PATIENT
  Age: 13 Year
  Sex: Male

DRUGS (6)
  1. SIROLIMUS. [Suspect]
     Active Substance: SIROLIMUS
     Indication: FIBRODYSPLASIA OSSIFICANS PROGRESSIVA
     Dosage: UNK
     Route: 065
  2. CANAKINUMAB. [Suspect]
     Active Substance: CANAKINUMAB
     Indication: FIBRODYSPLASIA OSSIFICANS PROGRESSIVA
     Dosage: UNK
     Route: 065
  3. PAMIDRONATE [Suspect]
     Active Substance: PAMIDRONATE DISODIUM
     Indication: FIBRODYSPLASIA OSSIFICANS PROGRESSIVA
     Dosage: UNK?INFUSION
     Route: 042
  4. MONTELUKAST [Suspect]
     Active Substance: MONTELUKAST SODIUM
     Indication: FIBRODYSPLASIA OSSIFICANS PROGRESSIVA
     Dosage: UNK
     Route: 065
  5. CELECOXIB. [Suspect]
     Active Substance: CELECOXIB
     Indication: FIBRODYSPLASIA OSSIFICANS PROGRESSIVA
     Dosage: UNK
     Route: 065
  6. ANAKINRA [Suspect]
     Active Substance: ANAKINRA
     Indication: FIBRODYSPLASIA OSSIFICANS PROGRESSIVA
     Dosage: UNK
     Route: 065

REACTIONS (1)
  - Off label use [Unknown]
